FAERS Safety Report 13593825 (Version 1)
Quarter: 2017Q2

REPORT INFORMATION
  Report Type: Report from Study
  Country: GB (occurrence: GB)
  Receive Date: 20170530
  Receipt Date: 20170530
  Transmission Date: 20170830
  Serious: Yes (Hospitalization)
  Sender: FDA-Public Use
  Company Number: GB-ROCHE-1940852

PATIENT
  Sex: Female

DRUGS (2)
  1. METHOTREXATE. [Concomitant]
     Active Substance: METHOTREXATE
     Indication: RHEUMATOID ARTHRITIS
  2. RITUXIMAB [Suspect]
     Active Substance: RITUXIMAB
     Indication: RHEUMATOID ARTHRITIS
     Dosage: MOST RECENT DOSE ON 30/OCT/2015
     Route: 042
     Dates: start: 20101122

REACTIONS (4)
  - Cholecystitis [Unknown]
  - Cerebral infarction [Unknown]
  - Lower respiratory tract infection [Unknown]
  - Biliary colic [Unknown]

NARRATIVE: CASE EVENT DATE: 20160318
